FAERS Safety Report 15027935 (Version 5)
Quarter: 2018Q3

REPORT INFORMATION
  Report Type: Spontaneous
  Country: GB (occurrence: GB)
  Receive Date: 20180619
  Receipt Date: 20180717
  Transmission Date: 20181010
  Serious: Yes (Other)
  Sender: FDA-Public Use
  Company Number: GB-TEVA-2018-GB-910620

PATIENT
  Age: 62 Year
  Sex: Female
  Weight: 113 kg

DRUGS (1)
  1. TETRACYCLINE [Suspect]
     Active Substance: TETRACYCLINE
     Route: 065
     Dates: start: 20180430

REACTIONS (3)
  - Rash [Not Recovered/Not Resolved]
  - Seasonal allergy [Unknown]
  - Pyrexia [Recovered/Resolved]

NARRATIVE: CASE EVENT DATE: 20180430
